FAERS Safety Report 21789976 (Version 1)
Quarter: 2022Q4

REPORT INFORMATION
  Report Type: Report from Study
  Country: US (occurrence: US)
  Receive Date: 20221228
  Receipt Date: 20221228
  Transmission Date: 20230112
  Serious: Yes (Other)
  Sender: FDA-Public Use
  Company Number: US-PFIZER INC-PV202200130757

PATIENT
  Age: 46 Year
  Sex: Female

DRUGS (2)
  1. IBRANCE [Suspect]
     Active Substance: PALBOCICLIB
     Indication: Breast cancer female
     Dosage: EVERY DAY FOR 21 DAYS OF 28 DAY CYCLE
     Route: 048
     Dates: start: 202104, end: 202210
  2. LETROZOLE [Concomitant]
     Active Substance: LETROZOLE
     Dosage: UNK

REACTIONS (3)
  - Clostridium difficile infection [Unknown]
  - Neuropathy peripheral [Not Recovered/Not Resolved]
  - Palpitations [Not Recovered/Not Resolved]
